FAERS Safety Report 5425092-2 (Version None)
Quarter: 2007Q3

REPORT INFORMATION
  Report Type: 
  Country: None (occurrence: None)
  Receive Date: 20070824
  Receipt Date: 20070822
  Transmission Date: 20080115
  Serious: Yes (Life-Threatening, Other)
  Sender: FDA-Public Use
  Company Number: JP-JNJFOC-20070802641

PATIENT
  Age: 61 Year
  Sex: Male

DRUGS (14)
  1. ITRIZOLE [Suspect]
     Route: 041
  2. ITRIZOLE [Suspect]
     Indication: SYSTEMIC MYCOSIS
     Route: 041
  3. SEPAMIT [Interacting]
     Indication: DRUG USE FOR UNKNOWN INDICATION
     Route: 065
  4. DIGOSIN [Interacting]
     Indication: DRUG USE FOR UNKNOWN INDICATION
     Route: 065
  5. ALLOPURINOL [Concomitant]
     Route: 065
  6. CALSLOT [Concomitant]
     Route: 065
  7. MEYLON [Concomitant]
     Route: 065
  8. FAMOTIDINE [Concomitant]
     Route: 065
  9. MAGNESIUM OXIDE [Concomitant]
     Route: 065
  10. KCL CORRECTIVE [Concomitant]
     Route: 065
  11. RYTHMODAN [Concomitant]
     Route: 065
  12. HUMULIN 70/30 [Concomitant]
     Route: 065
  13. FULCALIQ 3 [Concomitant]
     Route: 065
  14. NEUTROGIN [Concomitant]
     Route: 065

REACTIONS (4)
  - DRUG INTERACTION [None]
  - ELECTROCARDIOGRAM R ON T PHENOMENON [None]
  - LONG QT SYNDROME [None]
  - VENTRICULAR TACHYCARDIA [None]
